FAERS Safety Report 8132432-2 (Version None)
Quarter: 2012Q1

REPORT INFORMATION
  Report Type: 
  Country: None (occurrence: None)
  Receive Date: 20120207
  Receipt Date: 20120127
  Transmission Date: 20120608
  Serious: Yes (Other)
  Sender: FDA-Public Use
  Company Number: 2012MA001482

PATIENT
  Age: 87 Year
  Sex: Male

DRUGS (8)
  1. SLOZEM [Concomitant]
  2. EPROSARTAN [Concomitant]
  3. QVAR 40 [Concomitant]
  4. INDAPAMIDE [Concomitant]
  5. TRIMETHOPRIM [Concomitant]
  6. FYBOGEL [Concomitant]
  7. EUMVATE [Concomitant]
  8. LOSARTAN POTASSIUM [Suspect]
     Dates: start: 20111214, end: 20120104

REACTIONS (2)
  - PRURITUS [None]
  - RASH [None]
